FAERS Safety Report 25058766 (Version 1)
Quarter: 2025Q1

REPORT INFORMATION
  Report Type: Spontaneous
  Country: CN (occurrence: CN)
  Receive Date: 20250310
  Receipt Date: 20250310
  Transmission Date: 20250409
  Serious: Yes (Other)
  Sender: REGENERON
  Company Number: CN-SA-2025SA068065

PATIENT
  Age: 45 Year
  Sex: Male
  Weight: 64 kg

DRUGS (3)
  1. PRALUENT [Suspect]
     Active Substance: ALIROCUMAB
     Indication: Hypertension
     Dosage: 75 MG, QOW
     Route: 058
     Dates: start: 20250217, end: 20250218
  2. PRALUENT [Suspect]
     Active Substance: ALIROCUMAB
     Indication: Arteriosclerosis coronary artery
  3. PRALUENT [Suspect]
     Active Substance: ALIROCUMAB
     Indication: Hypercholesterolaemia

REACTIONS (3)
  - Erythema induratum [Recovering/Resolving]
  - Pruritus [Recovering/Resolving]
  - Product use in unapproved indication [Unknown]

NARRATIVE: CASE EVENT DATE: 20250217
